FAERS Safety Report 13524110 (Version 2)
Quarter: 2017Q2

REPORT INFORMATION
  Report Type: Spontaneous
  Country: US (occurrence: US)
  Receive Date: 20170508
  Receipt Date: 20170508
  Transmission Date: 20170830
  Serious: No
  Sender: FDA-Public Use
  Company Number: US-BAUSCH-BL-2016-032231

PATIENT
  Age: 25 Year
  Sex: Male
  Weight: 72.64 kg

DRUGS (1)
  1. OFLOXACIN OTIC [Suspect]
     Active Substance: OFLOXACIN
     Indication: EYE INFECTION
     Route: 047
     Dates: start: 20161220, end: 20161221

REACTIONS (4)
  - Wrong drug administered [Unknown]
  - Drug dispensing error [Unknown]
  - Ocular hyperaemia [Not Recovered/Not Resolved]
  - Eye irritation [Unknown]

NARRATIVE: CASE EVENT DATE: 20161220
